FAERS Safety Report 5451519-6 (Version None)
Quarter: 2007Q3

REPORT INFORMATION
  Report Type: 
  Country: None (occurrence: None)
  Receive Date: 20070913
  Receipt Date: 20070910
  Transmission Date: 20080115
  Serious: Yes (Other)
  Sender: FDA-Public Use
  Company Number: GBWYE284310SEP07

PATIENT
  Age: 17 Month
  Sex: Female
  Weight: 11.8 kg

DRUGS (25)
  1. SIROLIMUS [Suspect]
     Indication: IMMUNOSUPPRESSANT DRUG THERAPY
     Route: 048
     Dates: start: 20070810, end: 20070816
  2. AMBISOME [Concomitant]
     Dosage: UNKNOWN
  3. AMOXICILLIN [Concomitant]
     Dosage: UNKNOWN
  4. AMPHOTERICIN B [Concomitant]
     Route: 048
  5. COLISTIN SULFATE [Concomitant]
     Dosage: UNKNOWN
  6. CO-TRIMOXAZOLE [Concomitant]
     Route: 048
  7. DOMPERIDONE [Concomitant]
     Route: 048
  8. EPADERM [Concomitant]
     Route: 061
  9. ERYTHROMYCIN [Concomitant]
     Route: 048
  10. FERROUS FUMARATE [Concomitant]
     Route: 048
  11. FLUTICASONE PROPIONATE [Concomitant]
     Route: 055
  12. GENTAMICIN [Concomitant]
     Dosage: UNKNOWN
  13. LOPERAMIDE HCL [Concomitant]
     Route: 048
  14. METHYLPREDNISOLONE 16MG TAB [Concomitant]
     Dosage: UNKNOWN
  15. METRONIDAZOLE [Concomitant]
     Dosage: UNKNOWN
  16. MYCOPHENOLATE MOFETIL [Concomitant]
     Route: 048
  17. NYSTATIN [Concomitant]
     Dosage: UNKNOWN
  18. OILATUM PLUS [Concomitant]
     Route: 061
  19. OMEPRAZOLE [Concomitant]
     Route: 048
  20. SALBUTAMOL [Concomitant]
     Route: 055
  21. SEREVENT [Concomitant]
     Route: 055
  22. SPIRONOLACTONE [Concomitant]
     Route: 048
  23. TACROLIMUS [Concomitant]
     Route: 048
  24. URSODIOL [Concomitant]
     Route: 048
  25. ACYCLOVIR [Concomitant]
     Route: 048

REACTIONS (5)
  - CRYING [None]
  - EMOTIONAL DISTRESS [None]
  - ERYTHEMA [None]
  - PRURITUS [None]
  - RASH ERYTHEMATOUS [None]
